FAERS Safety Report 9576677 (Version 1)
Quarter: 2013Q4

REPORT INFORMATION
  Report Type: Spontaneous
  Country: US (occurrence: US)
  Receive Date: 20131001
  Receipt Date: 20131001
  Transmission Date: 20140711
  Serious: No
  Sender: FDA-Public Use
  Company Number: US-AMGEN-USASP2013004349

PATIENT
  Age: 67 Year
  Sex: Female
  Weight: 102.4 kg

DRUGS (7)
  1. PROCRIT [Suspect]
     Indication: THALASSAEMIA
     Dosage: 10000 UNIT, PRN
     Route: 058
  2. CLARINEX                           /01202601/ [Concomitant]
     Dosage: UNK
  3. FLUCASON [Concomitant]
     Dosage: UNK
  4. FLUTICASONE [Concomitant]
     Dosage: UNK
  5. FOSAMAX [Concomitant]
     Dosage: UNK
  6. VITAMINS                           /00067501/ [Concomitant]
     Dosage: UNK
  7. MINERALS NOS [Concomitant]
     Dosage: UNK

REACTIONS (4)
  - Blood test abnormal [Unknown]
  - Expired drug administered [Recovered/Resolved]
  - Malaise [Not Recovered/Not Resolved]
  - Anger [Unknown]
